FAERS Safety Report 10879213 (Version 1)
Quarter: 2015Q1

REPORT INFORMATION
  Report Type: Spontaneous
  Country: US (occurrence: US)
  Receive Date: 20150302
  Receipt Date: 20150302
  Transmission Date: 20150721
  Serious: Yes (Hospitalization)
  Sender: FDA-Public Use
  Company Number: US-ASTRAZENECA-2015SE17655

PATIENT
  Age: 171 Day
  Sex: Female
  Weight: 5.2 kg

DRUGS (6)
  1. SYNAGIS [Suspect]
     Active Substance: PALIVIZUMAB
     Indication: RESPIRATORY SYNCYTIAL VIRUS INFECTION
     Route: 030
     Dates: start: 20141208
  2. SILDENAFIL. [Concomitant]
     Active Substance: SILDENAFIL
     Route: 048
  3. SYNAGIS [Suspect]
     Active Substance: PALIVIZUMAB
     Indication: RESPIRATORY SYNCYTIAL VIRUS INFECTION
     Route: 030
     Dates: start: 201412
  4. SYNAGIS [Suspect]
     Active Substance: PALIVIZUMAB
     Indication: RESPIRATORY SYNCYTIAL VIRUS INFECTION
     Route: 030
     Dates: start: 20150105
  5. PREVACID [Concomitant]
     Active Substance: LANSOPRAZOLE
     Route: 048
  6. SYNTHROID [Concomitant]
     Active Substance: LEVOTHYROXINE SODIUM
     Route: 048

REACTIONS (1)
  - Bronchopneumonia [Unknown]

NARRATIVE: CASE EVENT DATE: 20150211
